FAERS Safety Report 5093037-3 (Version None)
Quarter: 2006Q3

REPORT INFORMATION
  Report Type: 
  Country: None (occurrence: None)
  Receive Date: 20060728
  Receipt Date: 20060619
  Transmission Date: 20061208
  Serious: Yes (Life-Threatening)
  Sender: FDA-Public Use
  Company Number: 253154

PATIENT
  Age: 62 Year
  Sex: Female
  Weight: 61.7 kg

DRUGS (2)
  1. LEVEMIR FLEXPEN(INSULIN DETERMIR) SOLUTION FOR INJECTION,.0024MOL/L [Suspect]
     Indication: DIABETES MELLITUS INSULIN-DEPENDENT
     Dosage: SEE IMAGE
     Route: 058
     Dates: start: 20060420
  2. HUMALOG [Concomitant]

REACTIONS (1)
  - HYPOGLYCAEMIC COMA [None]
